FAERS Safety Report 6911855-0 (Version None)
Quarter: 2010Q3

REPORT INFORMATION
  Report Type: 
  Country: None (occurrence: None)
  Receive Date: 20100806
  Receipt Date: 20070721
  Transmission Date: 20110219
  Serious: No
  Sender: FDA-Public Use
  Company Number: US-PFIZER INC-2007060192

PATIENT
  Sex: Female
  Weight: 63.6 kg

DRUGS (6)
  1. DETROL LA [Suspect]
     Indication: HYPERTONIC BLADDER
     Dates: start: 20070601
  2. LISINOPRIL [Concomitant]
  3. FOSAMAX [Concomitant]
  4. VITAMIN TAB [Concomitant]
  5. PROVENTIL GENTLEHALER [Concomitant]
  6. SERETIDE MITE [Concomitant]

REACTIONS (1)
  - VISION BLURRED [None]
